FAERS Safety Report 6616955-0 (Version None)
Quarter: 2010Q1

REPORT INFORMATION
  Report Type: 
  Country: None (occurrence: None)
  Receive Date: 20100301
  Receipt Date: 20100212
  Transmission Date: 20100710
  Serious: Yes (Death)
  Sender: FDA-Public Use
  Company Number: 1000012072

PATIENT
  Age: 18 Year
  Sex: Male

DRUGS (4)
  1. ESCITALOPRAM OXALATE [Suspect]
  2. TRAMADOL HCL [Suspect]
  3. DIAZEPAM [Suspect]
  4. PAROXETINE HCL [Suspect]

REACTIONS (3)
  - CARDIAC ARREST [None]
  - COMPLETED SUICIDE [None]
  - RESPIRATORY ARREST [None]
